FAERS Safety Report 24195248 (Version 1)
Quarter: 2024Q3

REPORT INFORMATION
  Report Type: Spontaneous
  Country: US (occurrence: US)
  Receive Date: 20240809
  Receipt Date: 20240809
  Transmission Date: 20241016
  Serious: No
  Sender: PHARMACEUTICAL ASSOC
  Company Number: US-PAIPHARMA-2023-US-041658

PATIENT
  Age: 76 Year
  Sex: Male
  Weight: 53.52 kg

DRUGS (5)
  1. LACTULOSE [Suspect]
     Active Substance: LACTULOSE
     Indication: Constipation
     Dosage: 15ML TO 30ML, 1 TIME A DAY, PRN
     Route: 048
     Dates: start: 20231115
  2. PREDNISONE [Concomitant]
     Active Substance: PREDNISONE
  3. MORPHINE [Concomitant]
     Active Substance: MORPHINE
  4. METOPROLOL [Concomitant]
     Active Substance: METOPROLOL
  5. LORAZEPAM [Concomitant]
     Active Substance: LORAZEPAM

REACTIONS (3)
  - Nausea [Recovered/Resolved]
  - Drug ineffective [Not Recovered/Not Resolved]
  - Intentional overdose [Not Recovered/Not Resolved]

NARRATIVE: CASE EVENT DATE: 20231115
